FAERS Safety Report 8378120-9 (Version None)
Quarter: 2012Q2

REPORT INFORMATION
  Report Type: 
  Country: None (occurrence: None)
  Receive Date: 20120521
  Receipt Date: 20120509
  Transmission Date: 20120825
  Serious: Yes (Other)
  Sender: FDA-Public Use
  Company Number: DKLU1079546

PATIENT
  Age: 44 Year
  Sex: Male

DRUGS (9)
  1. ETRAVIRINE (ETRAVIRINE) [Suspect]
     Indication: HIV INFECTION
     Dates: start: 20100601
  2. RALTEGRAVIR (RALTEGRAVIR) [Concomitant]
  3. ONFI [Suspect]
     Indication: CONVULSION
     Dosage: 10 MG MILLIGRAM(S), 1 IN 1 D; 20 MG MILLIGRAM(S), 1 IN 1 D; 10 MG MILLIGRAM(S), 1 IN 1 D
     Dates: start: 20101201
  4. ONFI [Suspect]
     Indication: CONVULSION
     Dosage: 10 MG MILLIGRAM(S), 1 IN 1 D; 20 MG MILLIGRAM(S), 1 IN 1 D; 10 MG MILLIGRAM(S), 1 IN 1 D
     Dates: start: 20081001, end: 20101201
  5. ONFI [Suspect]
     Indication: CONVULSION
     Dosage: 10 MG MILLIGRAM(S), 1 IN 1 D; 20 MG MILLIGRAM(S), 1 IN 1 D; 10 MG MILLIGRAM(S), 1 IN 1 D
     Dates: start: 20080101, end: 20081001
  6. LOPINAVIR/LOPINVIR (KALETRA) [Concomitant]
  7. EMTRICITABINE [Concomitant]
  8. VALPROIC ACID [Concomitant]
  9. TENOFOVIR (TENOFOVIR) [Concomitant]

REACTIONS (8)
  - CONVULSION [None]
  - SLOW SPEECH [None]
  - BALANCE DISORDER [None]
  - ASTHENIA [None]
  - DYSARTHRIA [None]
  - SOMNOLENCE [None]
  - ATAXIA [None]
  - DRUG INTERACTION [None]
